FAERS Safety Report 24453856 (Version 3)
Quarter: 2025Q4

REPORT INFORMATION
  Report Type: Report from Study
  Country: ZA (occurrence: ZA)
  Receive Date: 20241017
  Receipt Date: 20251205
  Transmission Date: 20260118
  Serious: Yes (Other)
  Sender: ROCHE
  Company Number: ZA-ROCHE-3435963

PATIENT
  Age: 45 Year
  Sex: Female

DRUGS (7)
  1. RITUXIMAB [Suspect]
     Active Substance: RITUXIMAB
     Indication: Rheumatoid arthritis
     Dosage: 6 MONTHLY
     Route: 042
     Dates: start: 20230601
  2. CHLOROQUINE [Concomitant]
     Active Substance: CHLOROQUINE
  3. METHOTREXATE [Concomitant]
     Active Substance: METHOTREXATE
  4. ARAVA [Concomitant]
     Active Substance: LEFLUNOMIDE
  5. SULFASALAZINE [Concomitant]
     Active Substance: SULFASALAZINE
  6. CYCLOPHOSPHAMIDE [Concomitant]
     Active Substance: CYCLOPHOSPHAMIDE
  7. PREDNISONE [Concomitant]
     Active Substance: PREDNISONE

REACTIONS (10)
  - Rheumatoid arthritis [Unknown]
  - Alanine aminotransferase increased [Unknown]
  - Aspartate aminotransferase increased [Unknown]
  - C-reactive protein increased [Unknown]
  - White blood cell count decreased [Unknown]
  - Blood creatinine increased [Unknown]
  - Alanine aminotransferase increased [Unknown]
  - Aspartate aminotransferase increased [Unknown]
  - C-reactive protein increased [Unknown]
  - Rheumatoid arthritis [Unknown]

NARRATIVE: CASE EVENT DATE: 20230601
